FAERS Safety Report 18161515 (Version 4)
Quarter: 2020Q3

REPORT INFORMATION
  Report Type: Report from Study
  Country: JP (occurrence: JP)
  Receive Date: 20200818
  Receipt Date: 20200903
  Transmission Date: 20201103
  Serious: Yes (Other)
  Sender: FDA-Public Use
  Company Number: JP-PFIZER INC-2020309131

PATIENT
  Age: 61 Year
  Sex: Male
  Weight: 51 kg

DRUGS (3)
  1. TRASTUZUMAB. [Suspect]
     Active Substance: TRASTUZUMAB
     Indication: EXTRAMAMMARY PAGET^S DISEASE
     Dosage: 4 MG/KG LOADING DOSE, CYCLIC
     Route: 042
  2. PACLITAXEL. [Suspect]
     Active Substance: PACLITAXEL
     Indication: EXTRAMAMMARY PAGET^S DISEASE
     Dosage: 80 MG/M2, DAY 1,8,15 EVERY 4 WEEK
     Route: 042
  3. TRASTUZUMAB. [Suspect]
     Active Substance: TRASTUZUMAB
     Dosage: 2 MG/DAY ON DAY 1, 5,15
     Route: 042

REACTIONS (3)
  - Ejection fraction decreased [Unknown]
  - Cardiotoxicity [Unknown]
  - Neurotoxicity [Unknown]
